FAERS Safety Report 18607932 (Version 1)
Quarter: 2020Q4

REPORT INFORMATION
  Report Type: Spontaneous
  Country: JP (occurrence: JP)
  Receive Date: 20201211
  Receipt Date: 20201211
  Transmission Date: 20210114
  Serious: Yes (Death, Other)
  Sender: FDA-Public Use
  Company Number: JP-GILEAD-2020-0498382

PATIENT
  Age: 78 Year
  Sex: Female
  Weight: 49.2 kg

DRUGS (96)
  1. REMDESIVIR. [Suspect]
     Active Substance: REMDESIVIR
     Dosage: 100 MG, QD
     Route: 041
     Dates: start: 20201014, end: 20201017
  2. CYCLOPHOSPHAMIDE MONOHYDRATE [Suspect]
     Active Substance: CYCLOPHOSPHAMIDE
     Indication: DIFFUSE LARGE B-CELL LYMPHOMA
     Route: 065
  3. ISOSORBIDE DINITRATE. [Concomitant]
     Active Substance: ISOSORBIDE DINITRATE
     Dosage: 40 MG, QD
     Route: 003
     Dates: start: 20201018, end: 20201018
  4. ITOROL [Concomitant]
     Active Substance: ISOSORBIDE MONONITRATE
     Dosage: 60MG/ DAY, BID
     Route: 048
     Dates: end: 20201104
  5. PREDONINE [Concomitant]
     Active Substance: PREDNISOLONE
     Dosage: 25MG/ DAY, BID
     Route: 048
     Dates: start: 20201024, end: 20201029
  6. SODIUM CHLORIDE. [Concomitant]
     Active Substance: SODIUM CHLORIDE
     Dosage: 50 ML
     Dates: start: 20201029, end: 20201104
  7. DAIPHEN [Concomitant]
     Active Substance: SULFAMETHOXAZOLE\TRIMETHOPRIM
     Dosage: 1 DOSAGE FORM, QD
     Route: 048
     Dates: start: 20201012, end: 20201012
  8. DAIPHEN [Concomitant]
     Active Substance: SULFAMETHOXAZOLE\TRIMETHOPRIM
     Dosage: 1 DOSAGE FORM, QD
     Route: 048
     Dates: start: 20201030, end: 20201031
  9. RECOMODULIN [Concomitant]
     Active Substance: THROMBOMODULIN ALFA
     Dosage: UNK
     Dates: start: 20201019, end: 20201024
  10. LASIX [Concomitant]
     Active Substance: FUROSEMIDE
     Dosage: 20 MG
     Dates: start: 20201029, end: 20201103
  11. GLUCOSE [Concomitant]
     Active Substance: DEXTROSE
     Dosage: 350 ML
     Dates: start: 20201030, end: 20201104
  12. VOLVIX [Concomitant]
     Dosage: 1 DOSAGE FORM
     Dates: start: 20201030, end: 20201104
  13. HIRUDOID [Concomitant]
     Active Substance: GLYCOSAMINOGLYCANS
     Dosage: UNK UNK, PRN
     Dates: start: 20201030, end: 20201030
  14. REMDESIVIR. [Suspect]
     Active Substance: REMDESIVIR
     Indication: COVID-19
     Dosage: 200 MG
     Route: 065
     Dates: start: 20200917, end: 20200917
  15. RITUXIMAB. [Suspect]
     Active Substance: RITUXIMAB
     Indication: DIFFUSE LARGE B-CELL LYMPHOMA
     Dosage: UNK
     Route: 065
  16. ISOSORBIDE DINITRATE. [Concomitant]
     Active Substance: ISOSORBIDE DINITRATE
     Dosage: 40 MG, QD
     Route: 003
     Dates: start: 20201020, end: 20201020
  17. ITOROL [Concomitant]
     Active Substance: ISOSORBIDE MONONITRATE
     Dosage: 60MG/ DAY, BID
     Route: 048
     Dates: start: 20201012, end: 20201013
  18. BISOPROLOL FUMARATE. [Concomitant]
     Active Substance: BISOPROLOL FUMARATE
     Dosage: 0.625 MG, BID
     Route: 048
     Dates: start: 20201012, end: 20201013
  19. BISOPROLOL FUMARATE. [Concomitant]
     Active Substance: BISOPROLOL FUMARATE
     Dosage: 0.625 MG, BID
     Route: 048
     Dates: end: 20201104
  20. EICOSAPENTAENOIC ACID ETHYL ESTER [Concomitant]
     Active Substance: ICOSAPENT ETHYL
     Dosage: 900 MG, BID
     Route: 048
     Dates: start: 20201012, end: 20201013
  21. EICOSAPENTAENOIC ACID ETHYL ESTER [Concomitant]
     Active Substance: ICOSAPENT ETHYL
     Dosage: 900 MG, BID
     Route: 048
     Dates: end: 20201104
  22. ALFACALCIDOL [Concomitant]
     Active Substance: ALFACALCIDOL
     Dosage: 0.5 UG, QD
     Route: 048
     Dates: end: 20201104
  23. KENKETU GLOVENIN-I [Concomitant]
     Active Substance: HUMAN IMMUNOGLOBULIN G
     Dosage: 1 DOSAGE FORM
     Dates: start: 20201013, end: 20201015
  24. SEISHOKU [Concomitant]
     Active Substance: SODIUM CHLORIDE
     Dosage: 250 ML
     Dates: start: 20201013, end: 20201013
  25. SEISHOKU [Concomitant]
     Active Substance: SODIUM CHLORIDE
     Dosage: UNK
     Dates: start: 20201013, end: 20201017
  26. SEISHOKU [Concomitant]
     Active Substance: SODIUM CHLORIDE
     Dosage: 150 ML
     Dates: start: 20201029, end: 20201102
  27. XYLOCAINE [Concomitant]
     Active Substance: LIDOCAINE HYDROCHLORIDE
     Dosage: UNK
     Dates: start: 20201024, end: 20201024
  28. MORPHINE HYDROCHLORIDE [Concomitant]
     Active Substance: MORPHINE HYDROCHLORIDE
     Dosage: 50 MG
     Dates: start: 20201029, end: 20201029
  29. REMDESIVIR. [Suspect]
     Active Substance: REMDESIVIR
     Dosage: 200 MG, QD
     Route: 041
     Dates: start: 20201013, end: 20201013
  30. ISOSORBIDE DINITRATE. [Concomitant]
     Active Substance: ISOSORBIDE DINITRATE
     Dosage: 40 MG, QD
     Route: 003
     Dates: start: 20201022, end: 20201028
  31. ATORVASTATIN [ATORVASTATIN CALCIUM TRIHYDRATE] [Concomitant]
     Active Substance: ATORVASTATIN CALCIUM TRIHYDRATE
     Dosage: 10 MG, QD
     Route: 048
     Dates: end: 20201104
  32. NICORANDIL [Concomitant]
     Active Substance: NICORANDIL
     Dosage: 5 MG, BID
     Route: 048
     Dates: end: 20201104
  33. LANSOPRAZOLE. [Concomitant]
     Active Substance: LANSOPRAZOLE
     Dosage: 15 MG, QD
     Route: 048
     Dates: start: 20201012, end: 20201013
  34. SODIUM CHLORIDE. [Concomitant]
     Active Substance: SODIUM CHLORIDE
     Dosage: 50 ML
     Dates: start: 20201013, end: 20201013
  35. BROTIZOLAM [Concomitant]
     Active Substance: BROTIZOLAM
     Dosage: 0.25 MG, PRN
     Route: 048
     Dates: start: 20201017, end: 20201017
  36. MORPHINE HYDROCHLORIDE [Concomitant]
     Active Substance: MORPHINE HYDROCHLORIDE
     Dosage: 50 MG
     Dates: start: 20201101, end: 20201102
  37. ALFACALCIDOL [Concomitant]
     Active Substance: ALFACALCIDOL
     Dosage: 0.5 UG, QD
     Route: 048
     Dates: start: 20201012, end: 20201013
  38. URSODEOXYCHOLIC ACID [Concomitant]
     Active Substance: URSODIOL
     Dosage: 200 MG, TID
     Route: 048
     Dates: start: 20201012, end: 20201013
  39. HACHIAZULE [SODIUM BICARBONATE;SODIUM GUALENATE] [Concomitant]
     Dosage: UNK
     Dates: start: 20201024, end: 20201024
  40. DAIPHEN [Concomitant]
     Active Substance: SULFAMETHOXAZOLE\TRIMETHOPRIM
     Dosage: 1 DOSAGE FORM, QD
     Route: 048
     Dates: start: 20201021, end: 20201022
  41. CALONAL [Concomitant]
     Active Substance: ACETAMINOPHEN
     Dosage: 2 DOSAGE FORM, PRN
     Route: 048
     Dates: start: 20201016, end: 20201016
  42. ELNEOPA NF NO.1 [Concomitant]
     Dosage: 1000 ML
     Dates: start: 20201017, end: 20201029
  43. XYLOCAINE [Concomitant]
     Active Substance: LIDOCAINE HYDROCHLORIDE
     Dosage: UNK
     Dates: start: 20201017, end: 20201017
  44. LASIX [Concomitant]
     Active Substance: FUROSEMIDE
     Dosage: 20 MG
     Dates: start: 20201022, end: 20201022
  45. KCL [Concomitant]
     Active Substance: POTASSIUM CHLORIDE
     Dosage: 1 DOSAGE FORM
     Dates: start: 20201101, end: 20201101
  46. MIDAZOLAM. [Concomitant]
     Active Substance: MIDAZOLAM
     Dosage: 50 MG
     Dates: start: 20201101, end: 20201103
  47. FAMOTIDINE. [Concomitant]
     Active Substance: FAMOTIDINE
     Dosage: 200 MG
     Dates: start: 20201104, end: 20201104
  48. MIYA-BM [Concomitant]
     Active Substance: CLOSTRIDIUM BUTYRICUM SPORES STRAIN M-55
     Dosage: 1 G, TID
     Route: 048
     Dates: start: 20201012, end: 20201013
  49. MIYA-BM [Concomitant]
     Active Substance: CLOSTRIDIUM BUTYRICUM SPORES STRAIN M-55
     Dosage: 1 G, TID
     Route: 048
     Dates: end: 20201101
  50. PREDONINE [Concomitant]
     Active Substance: PREDNISOLONE
     Dosage: 20 MG, BID
     Route: 048
     Dates: start: 20201012, end: 20201013
  51. LEVOFLOXACIN HEMIHYDRATE [Concomitant]
     Active Substance: LEVOFLOXACIN
     Dosage: 250 MG, QD
     Route: 048
     Dates: end: 20201029
  52. HACHIAZULE [SODIUM BICARBONATE;SODIUM GUALENATE] [Concomitant]
     Dosage: UNK
     Dates: start: 20201028, end: 20201028
  53. SODIUM CHLORIDE. [Concomitant]
     Active Substance: SODIUM CHLORIDE
     Dosage: 20 ML
     Dates: start: 20201104, end: 20201104
  54. ACTEMRA [Concomitant]
     Active Substance: TOCILIZUMAB
     Dosage: 360 MG
     Dates: start: 20201013, end: 20201013
  55. DAIPHEN [Concomitant]
     Active Substance: SULFAMETHOXAZOLE\TRIMETHOPRIM
     Dosage: 1 DOSAGE FORM, QD
     Route: 048
     Dates: start: 20201014, end: 20201015
  56. LOPERAMIDE [LOPERAMIDE HYDROCHLORIDE] [Concomitant]
     Active Substance: LOPERAMIDE HYDROCHLORIDE
     Dosage: 1 MG, QD
     Route: 048
     Dates: start: 20201025, end: 20201026
  57. XYLOCAINE [Concomitant]
     Active Substance: LIDOCAINE HYDROCHLORIDE
     Dosage: UNK
     Dates: start: 20201021, end: 20201021
  58. MEROPENEM [MEROPENEM TRIHYDRATE] [Concomitant]
     Active Substance: MEROPENEM
     Dosage: 2 G
     Dates: start: 20201029, end: 20201102
  59. MULTAMIN [Concomitant]
     Active Substance: VITAMINS
     Dosage: 1 DOSAGE FORM
     Dates: start: 20201030, end: 20201104
  60. ATORVASTATIN [ATORVASTATIN CALCIUM TRIHYDRATE] [Concomitant]
     Active Substance: ATORVASTATIN CALCIUM TRIHYDRATE
     Dosage: 10 MG, QD
     Route: 048
     Dates: start: 20201012, end: 20201013
  61. NICORANDIL [Concomitant]
     Active Substance: NICORANDIL
     Dosage: 5 MG, BID
     Route: 048
     Dates: start: 20201012, end: 20201013
  62. LANSOPRAZOLE. [Concomitant]
     Active Substance: LANSOPRAZOLE
     Dosage: 15 MG, QD
     Route: 048
     Dates: end: 20201104
  63. HACHIAZULE [SODIUM BICARBONATE;SODIUM GUALENATE] [Concomitant]
     Dosage: UNK
     Dates: start: 20201012, end: 20201012
  64. HACHIAZULE [SODIUM BICARBONATE;SODIUM GUALENATE] [Concomitant]
     Dosage: UNK
     Dates: start: 20201017, end: 20201017
  65. WATER PURIFIED [Concomitant]
     Dosage: UNK
     Dates: start: 20201028, end: 20201028
  66. SODIUM CHLORIDE. [Concomitant]
     Active Substance: SODIUM CHLORIDE
     Dosage: 20 ML
     Dates: start: 20201013, end: 20201015
  67. SODIUM CHLORIDE. [Concomitant]
     Active Substance: SODIUM CHLORIDE
     Dosage: 100 ML
     Dates: start: 20201029, end: 20201102
  68. XYLOCAINE [Concomitant]
     Active Substance: LIDOCAINE HYDROCHLORIDE
     Dosage: 10 ML
     Dates: start: 20201015, end: 20201015
  69. HEPARIN NA LOCK [Concomitant]
     Active Substance: HEPARIN SODIUM
     Dosage: 10 ML
     Dates: start: 20201015, end: 20201104
  70. TRAZODONE HYDROCHLORIDE. [Concomitant]
     Active Substance: TRAZODONE HYDROCHLORIDE
     Dosage: 25 MG, PRN
     Route: 048
     Dates: start: 20201018, end: 20201018
  71. VALACICLOVIR [VALACICLOVIR HYDROCHLORIDE] [Concomitant]
     Dosage: 500 MG, BID
     Route: 048
     Dates: start: 20201024, end: 20201030
  72. PARACETAMOL [Concomitant]
     Active Substance: ACETAMINOPHEN
     Dosage: 500 MG, PRN
     Dates: start: 20201026, end: 20201026
  73. DOXORUBICIN HYDROCHLORIDE. [Suspect]
     Active Substance: DOXORUBICIN HYDROCHLORIDE
     Indication: DIFFUSE LARGE B-CELL LYMPHOMA
     Dosage: UNK
     Route: 065
  74. PREDNISOLONE. [Suspect]
     Active Substance: PREDNISOLONE
     Indication: DIFFUSE LARGE B-CELL LYMPHOMA
     Route: 065
  75. ISOSORBIDE DINITRATE. [Concomitant]
     Active Substance: ISOSORBIDE DINITRATE
     Dosage: 40 MG, QD
     Route: 003
     Dates: end: 20201012
  76. PREDONINE [Concomitant]
     Active Substance: PREDNISOLONE
     Dosage: 20 MG, BID
     Route: 048
     Dates: end: 20201016
  77. PREDONINE [Concomitant]
     Active Substance: PREDNISOLONE
     Dosage: 15 MG, BID
     Route: 048
     Dates: start: 20201017, end: 20201023
  78. WATER PURIFIED [Concomitant]
     Dosage: UNK
     Dates: start: 20201012, end: 20201012
  79. SODIUM CHLORIDE. [Concomitant]
     Active Substance: SODIUM CHLORIDE
     Dosage: 50 ML
     Dates: start: 20201019, end: 20201024
  80. SODIUM CHLORIDE. [Concomitant]
     Active Substance: SODIUM CHLORIDE
     Dosage: 14 ML
     Dates: start: 20201101, end: 20201103
  81. DISTILLED WATER [WATER FOR INJECTION] [Concomitant]
     Dosage: UNK
     Dates: start: 20201013, end: 20201017
  82. DISTILLED WATER [WATER FOR INJECTION] [Concomitant]
     Dosage: UNK
     Dates: start: 20201029, end: 20201102
  83. DAIPHEN [Concomitant]
     Active Substance: SULFAMETHOXAZOLE\TRIMETHOPRIM
     Dosage: 1 DOSAGE FORM, QD
     Route: 048
     Dates: start: 20201028, end: 20201028
  84. XYLOCAINE [Concomitant]
     Active Substance: LIDOCAINE HYDROCHLORIDE
     Dosage: UNK
     Dates: start: 20201028, end: 20201028
  85. REMDESIVIR. [Suspect]
     Active Substance: REMDESIVIR
     Dosage: 100 MG
     Route: 065
     Dates: start: 20200918, end: 20200921
  86. ISOSORBIDE DINITRATE. [Concomitant]
     Active Substance: ISOSORBIDE DINITRATE
     Dosage: 40 MG, QD
     Route: 003
     Dates: start: 20201012, end: 20201013
  87. CLOPIDOGREL [CLOPIDOGREL BISULFATE] [Concomitant]
     Active Substance: CLOPIDOGREL BISULFATE
     Dosage: 75 MG, QD
     Route: 048
     Dates: start: 20201012, end: 20201013
  88. CLOPIDOGREL [CLOPIDOGREL BISULFATE] [Concomitant]
     Active Substance: CLOPIDOGREL BISULFATE
     Dosage: 75 MG, QD
     Route: 048
     Dates: end: 20201104
  89. URSODEOXYCHOLIC ACID [Concomitant]
     Active Substance: URSODIOL
     Dosage: 200 MG, TID
     Route: 048
     Dates: end: 20201101
  90. SOLDEM 1 [Concomitant]
     Active Substance: DEXTROSE\SODIUM CHLORIDE\SODIUM LACTATE
     Dosage: 500 ML
     Dates: start: 20201012, end: 20201012
  91. SOLDEM 1 [Concomitant]
     Active Substance: DEXTROSE\SODIUM CHLORIDE\SODIUM LACTATE
     Dosage: 500 ML
     Dates: start: 20201102, end: 20201104
  92. WATER PURIFIED [Concomitant]
     Dosage: UNK
     Dates: start: 20201017, end: 20201017
  93. WATER PURIFIED [Concomitant]
     Dosage: UNK
     Dates: start: 20201024, end: 20201024
  94. LOPERAMIDE [LOPERAMIDE HYDROCHLORIDE] [Concomitant]
     Active Substance: LOPERAMIDE HYDROCHLORIDE
     Dosage: 1 MG, QD
     Route: 048
     Dates: start: 20201016, end: 20201016
  95. LOPERAMIDE [LOPERAMIDE HYDROCHLORIDE] [Concomitant]
     Active Substance: LOPERAMIDE HYDROCHLORIDE
     Dosage: 1 MG, QD
     Route: 048
     Dates: start: 20201029, end: 20201029
  96. NEOAMIYU [Concomitant]
     Active Substance: AMINO ACIDS, SOURCE UNSPECIFIED
     Dosage: 2 DOSAGE FORM
     Route: 048
     Dates: start: 20201030, end: 20201104

REACTIONS (4)
  - Cytomegalovirus viraemia [Unknown]
  - Oxygen saturation decreased [Unknown]
  - COVID-19 [Fatal]
  - Interstitial lung disease [Fatal]

NARRATIVE: CASE EVENT DATE: 20201012
